FAERS Safety Report 6764254-9 (Version None)
Quarter: 2010Q2

REPORT INFORMATION
  Report Type: 
  Country: None (occurrence: None)
  Receive Date: 20100610
  Receipt Date: 20100601
  Transmission Date: 20101027
  Serious: Yes (Hospitalization)
  Sender: FDA-Public Use
  Company Number: JP-SANOFI-AVENTIS-2010SA020954

PATIENT
  Age: 86 Year
  Sex: Female

DRUGS (11)
  1. OXALIPLATIN [Suspect]
     Indication: RECTAL CANCER METASTATIC
     Route: 041
     Dates: start: 20091110, end: 20091110
  2. OXALIPLATIN [Suspect]
     Route: 041
     Dates: start: 20100216, end: 20100216
  3. FLUOROURACIL [Suspect]
     Indication: RECTAL CANCER METASTATIC
     Route: 040
     Dates: start: 20091110, end: 20091110
  4. FLUOROURACIL [Suspect]
     Route: 041
     Dates: start: 20091110, end: 20091111
  5. FLUOROURACIL [Suspect]
     Route: 040
     Dates: start: 20100216, end: 20100216
  6. FLUOROURACIL [Suspect]
     Route: 041
     Dates: start: 20100216, end: 20100217
  7. ISOVORIN [Suspect]
     Indication: RECTAL CANCER METASTATIC
     Route: 041
     Dates: start: 20091110, end: 20091110
  8. ISOVORIN [Suspect]
     Route: 041
     Dates: start: 20100216, end: 20100216
  9. AVASTIN [Suspect]
     Indication: RECTAL CANCER METASTATIC
     Route: 041
     Dates: start: 20091110, end: 20091110
  10. AVASTIN [Suspect]
     Route: 041
     Dates: start: 20100216, end: 20100216
  11. PROMAC [Concomitant]
     Dates: start: 20100126, end: 20100208

REACTIONS (4)
  - BONE MARROW FAILURE [None]
  - FEMALE GENITAL TRACT FISTULA [None]
  - ILEAL PERFORATION [None]
  - SMALL INTESTINAL PERFORATION [None]
